FAERS Safety Report 8383592-X (Version None)
Quarter: 2012Q1

REPORT INFORMATION
  Report Type: 
  Country: None (occurrence: None)
  Receive Date: 20120323
  Receipt Date: 20110322
  Transmission Date: 20120608
  Serious: Yes (Other)
  Sender: FDA-Public Use
  Company Number: 163-21880-11032625

PATIENT
  Age: 76 Year
  Sex: Female
  Weight: 79.8331 kg

DRUGS (16)
  1. DEXAMETHASONE [Concomitant]
  2. VAGISAM [Concomitant]
  3. FISH OIL (FISH OIL) [Concomitant]
  4. CALCIUM CARBONATE [Concomitant]
  5. XANAX [Concomitant]
  6. ASPIRIN [Concomitant]
  7. NORCO [Concomitant]
  8. APRESOLINE [Concomitant]
  9. ZANTAC [Concomitant]
  10. REVLIMID [Suspect]
     Indication: MULTIPLE MYELOMA
     Dosage: 10 MG, 1 IN 1 D, PO 5 MG, 1 IN 1 D, PO
     Route: 048
     Dates: start: 20101115, end: 20110301
  11. REVLIMID [Suspect]
     Indication: MULTIPLE MYELOMA
     Dosage: 10 MG, 1 IN 1 D, PO 5 MG, 1 IN 1 D, PO
     Route: 048
     Dates: start: 20110301
  12. FLURAZEPAM [Concomitant]
  13. OCMPAZINE (PROCHLORPERAZINE EDISYLATE) [Concomitant]
  14. TENORMIN [Concomitant]
  15. LASIX [Concomitant]
  16. ALBUTEROL [Concomitant]

REACTIONS (2)
  - RENAL IMPAIRMENT [None]
  - CONDITION AGGRAVATED [None]
